FAERS Safety Report 6392059-X (Version None)
Quarter: 2009Q4

REPORT INFORMATION
  Report Type: 
  Country: None (occurrence: None)
  Receive Date: 20091007
  Receipt Date: 20090928
  Transmission Date: 20100525
  Serious: Yes (Hospitalization)
  Sender: FDA-Public Use
  Company Number: JP-ASTRAZENECA-2009SE07170

PATIENT
  Age: 82 Year
  Sex: Female
  Weight: 55 kg

DRUGS (10)
  1. IRESSA [Suspect]
     Indication: LUNG NEOPLASM MALIGNANT
     Route: 048
     Dates: start: 20061004, end: 20061101
  2. IRESSA [Suspect]
     Route: 048
     Dates: start: 20061101, end: 20061201
  3. IRESSA [Suspect]
     Route: 048
     Dates: start: 20061201, end: 20090722
  4. NIVADIL [Concomitant]
     Indication: HYPERTENSION
     Route: 048
     Dates: start: 20061121
  5. PANALDINE [Concomitant]
     Indication: CEREBRAL INFARCTION
     Route: 048
     Dates: start: 20061121
  6. DIOVAN [Concomitant]
     Indication: HYPERTENSION
     Route: 048
     Dates: start: 20061121
  7. LIPITOR [Concomitant]
     Indication: HYPERLIPIDAEMIA
     Route: 048
     Dates: start: 20061121
  8. HERBESSER [Concomitant]
     Indication: HYPERTENSION
     Route: 048
     Dates: start: 20061121
  9. ONEALFA [Concomitant]
     Indication: OSTEOPOROSIS
     Route: 048
     Dates: start: 20061121
  10. MUCOSTA [Concomitant]
     Indication: GASTRITIS
     Dosage: DOSE UNKNOWN
     Route: 048
     Dates: start: 20061121

REACTIONS (2)
  - OEDEMA PERIPHERAL [None]
  - RASH [None]
